FAERS Safety Report 20997527 (Version 1)
Quarter: 2022Q2

REPORT INFORMATION
  Report Type: Spontaneous
  Country: KR (occurrence: KR)
  Receive Date: 20220623
  Receipt Date: 20220623
  Transmission Date: 20220721
  Serious: Yes (Other)
  Sender: FDA-Public Use
  Company Number: KR-009507513-2206KOR006306

PATIENT
  Age: 54 Year
  Sex: Male
  Weight: 84.5 kg

DRUGS (3)
  1. PREVYMIS [Suspect]
     Active Substance: LETERMOVIR
     Indication: Antiviral prophylaxis
     Dosage: UNK, ONCE DAILY
     Route: 048
     Dates: start: 20211119, end: 20211130
  2. PREVYMIS [Suspect]
     Active Substance: LETERMOVIR
     Dosage: UNK,  ONCE DAILY
     Route: 048
     Dates: start: 20211206, end: 20220220
  3. PREVYMIS [Suspect]
     Active Substance: LETERMOVIR
     Indication: Antiviral prophylaxis
     Dosage: UNK, STRENGTH: 480 MG/24 ML, ONCE DAILY
     Route: 042
     Dates: start: 20211201, end: 20211205

REACTIONS (2)
  - Pneumonia cytomegaloviral [Unknown]
  - Drug ineffective [Unknown]

NARRATIVE: CASE EVENT DATE: 20220308
